FAERS Safety Report 8048857-X (Version None)
Quarter: 2012Q1

REPORT INFORMATION
  Report Type: 
  Country: None (occurrence: None)
  Receive Date: 20120117
  Receipt Date: 20120105
  Transmission Date: 20120608
  Serious: Yes (Death, Hospitalization)
  Sender: FDA-Public Use
  Company Number: JP-UCBSA-049321

PATIENT
  Age: 89 Year
  Sex: Male

DRUGS (2)
  1. TEGRETOL [Concomitant]
     Dosage: DAILY DOSE:0.4 G
     Route: 048
     Dates: start: 20111221, end: 20120105
  2. KEPPRA [Suspect]
     Route: 048
     Dates: start: 20111206, end: 20111221

REACTIONS (2)
  - DEATH [None]
  - HEPATIC FUNCTION ABNORMAL [None]
